FAERS Safety Report 10524320 (Version 3)
Quarter: 2015Q2

REPORT INFORMATION
  Report Type: Report from Study
  Country: RU (occurrence: RU)
  Receive Date: 20141017
  Receipt Date: 20150508
  Transmission Date: 20150821
  Serious: Yes (Hospitalization, Other)
  Sender: FDA-Public Use
  Company Number: RU-NOVOPROD-424868

PATIENT
  Age: 56 Year
  Sex: Female
  Weight: 74.5 kg

DRUGS (1)
  1. LIRAGLUTIDE FLEXPEN [Suspect]
     Active Substance: LIRAGLUTIDE
     Indication: TYPE 2 DIABETES MELLITUS
     Dosage: 1.2,MG,QD
     Route: 058
     Dates: start: 20120326

REACTIONS (1)
  - Breast cancer [Recovered/Resolved with Sequelae]

NARRATIVE: CASE EVENT DATE: 20140909
